FAERS Safety Report 16789706 (Version 1)
Quarter: 2019Q3

REPORT INFORMATION
  Report Type: Spontaneous
  Country: US (occurrence: US)
  Receive Date: 20190910
  Receipt Date: 20190910
  Transmission Date: 20191005
  Serious: No
  Sender: FDA-Public Use
  Company Number: US-SA-2019SA244770

PATIENT
  Sex: Female

DRUGS (1)
  1. DUPIXENT [Suspect]
     Active Substance: DUPILUMAB
     Indication: DERMATITIS ATOPIC
     Dosage: 300 MG, QOW
     Route: 058
     Dates: start: 20180109

REACTIONS (6)
  - Rash [Unknown]
  - Headache [Unknown]
  - Dermatitis atopic [Unknown]
  - Pruritus generalised [Unknown]
  - Pyrexia [Unknown]
  - Contraindicated product administered [Unknown]
